FAERS Safety Report 9627612 (Version 2)
Quarter: 2013Q4

REPORT INFORMATION
  Report Type: Not Available
  Country: US (occurrence: US)
  Receive Date: 20131016
  Receipt Date: 20131016
  Transmission Date: 20140711
  Serious: Yes (Other)
  Sender: FDA-Public Use
  Company Number: US-LUNDBECK-DKLU1090471

PATIENT
  Age: 15 Year
  Sex: Male

DRUGS (2)
  1. SABRIL (TABLET) [Suspect]
     Indication: EPILEPSY
     Route: 048
     Dates: start: 20130404
  2. SABRIL (TABLET) [Suspect]
     Indication: SIMPLE PARTIAL SEIZURES

REACTIONS (3)
  - Convulsion [Recovered/Resolved]
  - Viral infection [Unknown]
  - Headache [Unknown]
